FAERS Safety Report 16340507 (Version 1)
Quarter: 2019Q2

REPORT INFORMATION
  Report Type: Spontaneous
  Country: DE (occurrence: DE)
  Receive Date: 20190522
  Receipt Date: 20190522
  Transmission Date: 20190711
  Serious: Yes (Life-Threatening, Hospitalization, Other)
  Sender: FDA-Public Use
  Company Number: DE-AUROBINDO-AUR-APL-2018-010753

PATIENT
  Age: 20 Year
  Sex: Male

DRUGS (7)
  1. TIAPRIDE [Concomitant]
     Active Substance: TIAPRIDE
     Indication: DYSKINESIA
     Dosage: ()
     Route: 065
  2. ALCOHOL. [Concomitant]
     Active Substance: ALCOHOL
     Indication: POISONING
     Dosage: UNK
     Route: 065
  3. PREGABALIN. [Suspect]
     Active Substance: PREGABALIN
     Indication: DYSKINESIA
     Dosage: 150 MILLIGRAM, ONCE A DAY
     Route: 065
  4. PREGABALIN. [Suspect]
     Active Substance: PREGABALIN
     Indication: PARTIAL SEIZURES
  5. IBUPROFEN. [Suspect]
     Active Substance: IBUPROFEN
     Indication: PRODUCT USED FOR UNKNOWN INDICATION
     Dosage: UNK
     Route: 065
  6. PREGABALIN. [Suspect]
     Active Substance: PREGABALIN
     Indication: PARTIAL SEIZURES
  7. ACETYLSALICYLIC ACID [Suspect]
     Active Substance: ASPIRIN
     Indication: PRODUCT USED FOR UNKNOWN INDICATION
     Dosage: UNK
     Route: 065

REACTIONS (9)
  - Depression [Recovering/Resolving]
  - Intentional overdose [Recovered/Resolved]
  - Condition aggravated [Recovered/Resolved]
  - Anxiety [Recovered/Resolved]
  - Suicidal ideation [Recovered/Resolved]
  - Sleep disorder [Recovered/Resolved]
  - Alcohol interaction [Recovered/Resolved]
  - Apathy [Recovered/Resolved]
  - Suicide attempt [Recovered/Resolved]
